FAERS Safety Report 18156049 (Version 2)
Quarter: 2021Q3

REPORT INFORMATION
  Report Type: Spontaneous
  Country: US (occurrence: US)
  Receive Date: 20200817
  Receipt Date: 20210809
  Transmission Date: 20211014
  Serious: Yes (Other)
  Sender: FDA-Public Use
  Company Number: US-SA-2020SA213019

PATIENT
  Age: 73 Year
  Sex: Male

DRUGS (1)
  1. ZANTAC [Suspect]
     Active Substance: RANITIDINE HYDROCHLORIDE
     Indication: DYSPEPSIA
     Dosage: 75 MG: OCCASIONAL
     Dates: start: 198710, end: 200904

REACTIONS (3)
  - Hepatic cancer stage IV [Unknown]
  - Lung neoplasm malignant [Unknown]
  - Spinal disorder [Unknown]

NARRATIVE: CASE EVENT DATE: 20190201
